FAERS Safety Report 15755303 (Version 1)
Quarter: 2018Q4

REPORT INFORMATION
  Report Type: Spontaneous
  Country: DE (occurrence: DE)
  Receive Date: 20181224
  Receipt Date: 20181224
  Transmission Date: 20190205
  Serious: Yes (Other)
  Sender: FDA-Public Use
  Company Number: DE-AUROBINDO-AUR-APL-2018-060872

PATIENT
  Sex: Female

DRUGS (1)
  1. VALSARTAN FILM-COATED TABLETS 320MG [Suspect]
     Active Substance: VALSARTAN
     Indication: PRODUCT USED FOR UNKNOWN INDICATION
     Dosage: UNK, (TAKING OVER MANY YEARS)
     Route: 048

REACTIONS (2)
  - Bladder cancer recurrent [Unknown]
  - Bladder cancer [Unknown]

NARRATIVE: CASE EVENT DATE: 2015
